FAERS Safety Report 8862421 (Version 1)
Quarter: 2012Q4

REPORT INFORMATION
  Report Type: 
  Country: AR (occurrence: AR)
  Receive Date: 20121026
  Receipt Date: 20121026
  Transmission Date: 20130627
  Serious: Yes (Other)
  Sender: FDA-Public Use
  Company Number: PHHY2012AR095733

PATIENT
  Age: 67 None
  Sex: Male

DRUGS (2)
  1. DIOVAN [Suspect]
     Indication: HYPERTENSION
     Dosage: 160 mg, daily
  2. DIOVAN D [Suspect]
     Indication: HYPERTENSION
     Dosage: 1DF(160/unknown), daily

REACTIONS (2)
  - Arrhythmia [Recovered/Resolved]
  - Drug dispensing error [Unknown]
